FAERS Safety Report 12313449 (Version 1)
Quarter: 2016Q2

REPORT INFORMATION
  Report Type: Spontaneous
  Country: US (occurrence: US)
  Receive Date: 20160428
  Receipt Date: 20160428
  Transmission Date: 20160815
  Serious: No
  Sender: FDA-Public Use
  Company Number: US-BIOGEN-2016BI00219482

PATIENT

DRUGS (1)
  1. TECFIDERA [Suspect]
     Active Substance: DIMETHYL FUMARATE
     Indication: MULTIPLE SCLEROSIS
     Route: 065
     Dates: start: 201307

REACTIONS (8)
  - Hot flush [Unknown]
  - General symptom [Unknown]
  - Diarrhoea [Unknown]
  - Flushing [Unknown]
  - Nausea [Unknown]
  - Pruritus [Unknown]
  - White blood cell count abnormal [Unknown]
  - Abdominal pain [Unknown]
